FAERS Safety Report 11818441 (Version 2)
Quarter: 2016Q1

REPORT INFORMATION
  Report Type: Spontaneous
  Country: US (occurrence: US)
  Receive Date: 20151210
  Receipt Date: 20160322
  Transmission Date: 20160525
  Serious: No
  Sender: FDA-Public Use
  Company Number: US-JNJFOC-20151110224

PATIENT
  Sex: Male

DRUGS (1)
  1. RISPERDAL [Suspect]
     Active Substance: RISPERIDONE
     Indication: ATTENTION DEFICIT/HYPERACTIVITY DISORDER
     Dosage: VARYING DOSES 1.00 - 2.00 MG
     Route: 048
     Dates: start: 2013, end: 2015

REACTIONS (4)
  - Off label use [Unknown]
  - Product use issue [Unknown]
  - Gynaecomastia [Unknown]
  - Weight increased [Unknown]

NARRATIVE: CASE EVENT DATE: 2013
